FAERS Safety Report 7082675-4 (Version None)
Quarter: 2010Q4

REPORT INFORMATION
  Report Type: 
  Country: None (occurrence: None)
  Receive Date: 20101026
  Receipt Date: 20101011
  Transmission Date: 20110411
  Serious: Yes (Hospitalization)
  Sender: FDA-Public Use
  Company Number: 1000016819

PATIENT
  Age: 80 Year
  Sex: Male

DRUGS (5)
  1. NEBIVOLOL HCL [Suspect]
     Indication: HYPERTENSION
     Dosage: 2.5 MG (2.5 MG, 1 IN 1 D), ORAL
     Route: 048
     Dates: end: 20100821
  2. KARDEGIC (ACETYLSALICYLATE LYSINE) (ACETYLSALICYLATE LYSINE) [Concomitant]
  3. MOPRAL (OMEPRAZOLE) (OMEPRAZOLE) [Concomitant]
  4. APROVEL (IRBESARTAN) (IRBESARTAN) [Concomitant]
  5. PLAVIX (CLOPIDOGREL) (CLOPIDOGREL) [Concomitant]

REACTIONS (4)
  - ATRIOVENTRICULAR BLOCK FIRST DEGREE [None]
  - BRADYCARDIA [None]
  - BUNDLE BRANCH BLOCK LEFT [None]
  - SYNCOPE [None]
